FAERS Safety Report 17353706 (Version 5)
Quarter: 2021Q2

REPORT INFORMATION
  Report Type: Spontaneous
  Country: US (occurrence: US)
  Receive Date: 20200131
  Receipt Date: 20210621
  Transmission Date: 20210716
  Serious: Yes (Other)
  Sender: FDA-Public Use
  Company Number: US-GILEAD-2020-0448974

PATIENT
  Age: 59 Year
  Sex: Male
  Weight: 104.31 kg

DRUGS (39)
  1. PRAVASTATIN SODIUM. [Concomitant]
     Active Substance: PRAVASTATIN SODIUM
  2. SODIUM POLYSTYRENE SULFONATE. [Concomitant]
     Active Substance: SODIUM POLYSTYRENE SULFONATE
  3. AMLODIPINE [Concomitant]
     Active Substance: AMLODIPINE BESYLATE
  4. DAPSONE. [Concomitant]
     Active Substance: DAPSONE
  5. ACYCLOVIR [ACICLOVIR] [Concomitant]
     Active Substance: ACYCLOVIR
  6. LEVITRA [Concomitant]
     Active Substance: VARDENAFIL HYDROCHLORIDE
  7. AMOXICILLIN. [Concomitant]
     Active Substance: AMOXICILLIN
  8. ZIAGEN [Concomitant]
     Active Substance: ABACAVIR SULFATE
  9. GLIPIZIDE. [Concomitant]
     Active Substance: GLIPIZIDE
  10. LIDOCAINE;PRILOCAINE [Concomitant]
  11. AZITHROMYCIN ANHYDROUS. [Concomitant]
     Active Substance: AZITHROMYCIN ANHYDROUS
  12. LIDOCAINE. [Concomitant]
     Active Substance: LIDOCAINE
  13. KLOR?CON [Concomitant]
     Active Substance: POTASSIUM CHLORIDE
  14. KIONEX [Concomitant]
     Active Substance: SODIUM POLYSTYRENE SULFONATE
  15. VITAMIN D NOS [Concomitant]
     Active Substance: VITAMIN D NOS
  16. PANTOPRAZOLE [Concomitant]
     Active Substance: PANTOPRAZOLE
  17. PRAVASTATIN. [Concomitant]
     Active Substance: PRAVASTATIN
  18. TRIUMEQ [Concomitant]
     Active Substance: ABACAVIR SULFATE\DOLUTEGRAVIR SODIUM\LAMIVUDINE
  19. MEPRON [METAMIZOLE SODIUM] [Concomitant]
     Active Substance: METAMIZOLE SODIUM
  20. REYATAZ [Concomitant]
     Active Substance: ATAZANAVIR SULFATE
  21. PREDNISONE. [Concomitant]
     Active Substance: PREDNISONE
  22. TACROLIMUS. [Concomitant]
     Active Substance: TACROLIMUS
  23. MEPRON [Concomitant]
     Active Substance: ATOVAQUONE
  24. TRUVADA [Suspect]
     Active Substance: EMTRICITABINE\TENOFOVIR DISOPROXIL FUMARATE
     Indication: HIV INFECTION
     Dosage: UNK
     Route: 048
     Dates: start: 200803, end: 201612
  25. TRIAMCINOLONE ACETONIDE. [Concomitant]
     Active Substance: TRIAMCINOLONE ACETONIDE
  26. KALETRA [Concomitant]
     Active Substance: LOPINAVIR\RITONAVIR
  27. DOXYCYCLINE MONOHYDRATE [Concomitant]
     Active Substance: DOXYCYCLINE
  28. NORVIR [Concomitant]
     Active Substance: RITONAVIR
  29. HYDROCODONE [Concomitant]
     Active Substance: HYDROCODONE
  30. ROCALTROL [Concomitant]
     Active Substance: CALCITRIOL
  31. GAVILYTE ? C [Concomitant]
     Active Substance: POLYETHYLENE GLYCOL 3350\POTASSIUM CHLORIDE\SODIUM BICARBONATE\SODIUM CHLORIDE\SODIUM SULFATE
  32. TRIAMCINOLONE [Concomitant]
     Active Substance: TRIAMCINOLONE
  33. ISENTRESS [Concomitant]
     Active Substance: RALTEGRAVIR POTASSIUM
  34. ELIDEL [Concomitant]
     Active Substance: PIMECROLIMUS
  35. FLUCONAZOLE. [Concomitant]
     Active Substance: FLUCONAZOLE
  36. ACETAMINOPHEN. [Concomitant]
     Active Substance: ACETAMINOPHEN
  37. ROSUVASTATIN. [Concomitant]
     Active Substance: ROSUVASTATIN
  38. LISINOPRIL AND HYDROCHLOROTHIAZIDE [Concomitant]
     Active Substance: HYDROCHLOROTHIAZIDE\LISINOPRIL
  39. TERAZOSIN [Concomitant]
     Active Substance: TERAZOSIN HYDROCHLORIDE

REACTIONS (13)
  - Osteopenia [Not Recovered/Not Resolved]
  - Anhedonia [Unknown]
  - Anxiety [Unknown]
  - Renal failure [Unknown]
  - Bone density decreased [Unknown]
  - Emotional distress [Unknown]
  - Acute kidney injury [Recovered/Resolved]
  - Pain [Unknown]
  - Chronic kidney disease [Not Recovered/Not Resolved]
  - Economic problem [Unknown]
  - Lumbar vertebral fracture [Not Recovered/Not Resolved]
  - Osteonecrosis [Unknown]
  - Bone loss [Unknown]

NARRATIVE: CASE EVENT DATE: 20080520
